FAERS Safety Report 22671840 (Version 3)
Quarter: 2025Q3

REPORT INFORMATION
  Report Type: Spontaneous
  Country: EU (occurrence: EU)
  Receive Date: 20230705
  Receipt Date: 20250820
  Transmission Date: 20251021
  Serious: Yes (Death, Congenital Anomaly, Other)
  Sender: CIPLA
  Company Number: EU-CIPLA LTD.-2023IT03524

PATIENT

DRUGS (6)
  1. TENOFOVIR [Suspect]
     Active Substance: TENOFOVIR
     Route: 064
  2. DOLUTEGRAVIR [Suspect]
     Active Substance: DOLUTEGRAVIR
     Route: 064
  3. EMTRICITABINE [Suspect]
     Active Substance: EMTRICITABINE
     Route: 064
  4. PREZCOBIX [Suspect]
     Active Substance: COBICISTAT\DARUNAVIR ETHANOLATE
     Route: 064
  5. COBICISTAT\DARUNAVIR ETHANOLATE [Suspect]
     Active Substance: COBICISTAT\DARUNAVIR ETHANOLATE
     Route: 064
  6. VEMLIDY [Suspect]
     Active Substance: TENOFOVIR ALAFENAMIDE FUMARATE
     Route: 064

REACTIONS (9)
  - Neurotoxicity [Fatal]
  - Nephropathy toxic [Fatal]
  - Dyslipidaemia [Fatal]
  - Virologic failure [Fatal]
  - Fat redistribution [Fatal]
  - Cardiovascular disorder [Fatal]
  - Toxicity to various agents [Fatal]
  - Osteoporosis [Fatal]
  - Foetal exposure during pregnancy [Fatal]
